FAERS Safety Report 10726576 (Version 1)
Quarter: 2015Q1

REPORT INFORMATION
  Report Type: Spontaneous
  Country: US (occurrence: None)
  Receive Date: 20150120
  Receipt Date: 20150120
  Transmission Date: 20150721
  Serious: Yes (Life-Threatening, Hospitalization)
  Sender: FDA-Public Use
  Company Number: None

PATIENT
  Age: 13 Year
  Sex: Female
  Weight: 23.13 kg

DRUGS (1)
  1. LORAZEPAM 1MG RANBAXY [Suspect]
     Active Substance: LORAZEPAM
     Indication: EPILEPSY
     Route: 048
     Dates: start: 200612

REACTIONS (1)
  - Drug ineffective [None]

NARRATIVE: CASE EVENT DATE: 200612
